FAERS Safety Report 24594071 (Version 1)
Quarter: 2024Q4

REPORT INFORMATION
  Report Type: Spontaneous
  Country: GR (occurrence: GR)
  Receive Date: 20241108
  Receipt Date: 20241108
  Transmission Date: 20250114
  Serious: Yes (Life-Threatening, Hospitalization, Other)
  Sender: RANBAXY
  Company Number: GR-SUN PHARMACEUTICAL INDUSTRIES LTD-2024R1-477765

PATIENT

DRUGS (8)
  1. NOREPINEPHRINE [Suspect]
     Active Substance: NOREPINEPHRINE\NOREPINEPHRINE BITARTRATE
     Indication: Anaesthesia
     Dosage: UNK (0.1 ML/HR)
     Route: 064
  2. TINZAPARIN [Suspect]
     Active Substance: TINZAPARIN
     Indication: Prophylaxis
     Dosage: 0.45 INTERNATIONAL UNIT, DAILY
     Route: 064
  3. CIMETIDINE [Suspect]
     Active Substance: CIMETIDINE
     Indication: Premedication
     Dosage: UNK (200 MG)
     Route: 064
  4. METOCLOPRAMIDE [Suspect]
     Active Substance: METOCLOPRAMIDE
     Indication: Premedication
     Dosage: UNK (10 MG)
     Route: 064
  5. ETOMIDATE [Suspect]
     Active Substance: ETOMIDATE
     Indication: General anaesthesia
     Dosage: UNK (0.3 MG/KG)
     Route: 064
  6. PROPOFOL [Suspect]
     Active Substance: PROPOFOL
     Indication: General anaesthesia
     Dosage: UNK (30 MG)
     Route: 064
  7. ROCURONIUM [Suspect]
     Active Substance: ROCURONIUM BROMIDE
     Indication: General anaesthesia
     Dosage: UNK (1.2 MG/KG)
     Route: 064
  8. SEVOFLURANE [Suspect]
     Active Substance: SEVOFLURANE
     Indication: General anaesthesia
     Dosage: UNK (0.8 %)
     Route: 064

REACTIONS (2)
  - Premature baby [Unknown]
  - Foetal exposure during pregnancy [Unknown]
